FAERS Safety Report 10227882 (Version 1)
Quarter: 2014Q2

REPORT INFORMATION
  Report Type: Spontaneous
  Country: GB (occurrence: GB)
  Receive Date: 20140610
  Receipt Date: 20140610
  Transmission Date: 20141212
  Serious: Yes (Disabling)
  Sender: FDA-Public Use
  Company Number: GB-TEVA-485928ISR

PATIENT
  Age: 58 Year
  Sex: Male
  Weight: 88.9 kg

DRUGS (23)
  1. FUROSEMIDE [Suspect]
     Dosage: REDUCED TO 60MG
  2. FUROSEMIDE [Suspect]
  3. RANOLAZINE [Suspect]
     Indication: ANGINA PECTORIS
     Dosage: 1000 MILLIGRAM DAILY;
     Route: 048
     Dates: start: 20140113, end: 20140507
  4. RANOLAZINE [Suspect]
     Indication: ANGINA PECTORIS
     Dosage: 1500 MILLIGRAM DAILY;
     Route: 048
     Dates: start: 20140508
  5. RANOLAZINE [Suspect]
     Indication: ANGINA PECTORIS
     Dosage: 750 MILLIGRAM DAILY;
     Route: 048
     Dates: start: 20131204, end: 20140112
  6. AMITRIPTYLINE [Concomitant]
  7. ASPIRIN [Concomitant]
  8. ATORVASTATIN [Concomitant]
  9. BISOPROLOL [Concomitant]
  10. EZETIMIBE [Concomitant]
  11. GTN [Concomitant]
  12. ISOSORBIDE MONONITRATE [Concomitant]
  13. MORPHINE SULFATE [Concomitant]
  14. NICORANDIL [Concomitant]
  15. OMEPRAZOLE [Concomitant]
  16. PARACETAMOL [Concomitant]
  17. PENICILLIN V [Concomitant]
  18. PREGABALIN [Concomitant]
  19. RAMIPRIL [Concomitant]
  20. SERTRALINE [Concomitant]
  21. SEVREDOL [Concomitant]
  22. SPIRONOLACTONE [Concomitant]
  23. TAMSULOSIN [Concomitant]

REACTIONS (3)
  - Loss of consciousness [Recovered/Resolved with Sequelae]
  - Circulatory collapse [Recovered/Resolved with Sequelae]
  - Dizziness [Not Recovered/Not Resolved]
